FAERS Safety Report 11943769 (Version 1)
Quarter: 2016Q1

REPORT INFORMATION
  Report Type: Spontaneous
  Country: US (occurrence: US)
  Receive Date: 20160125
  Receipt Date: 20160125
  Transmission Date: 20160526
  Serious: No
  Sender: FDA-Public Use
  Company Number: US-UNITED THERAPEUTICS-UNT-2015-010544

PATIENT
  Age: 64 Year
  Sex: Female
  Weight: 110.2 kg

DRUGS (16)
  1. ORENITRAM [Suspect]
     Active Substance: TREPROSTINIL
     Dosage: 0.75 MG, TID
     Route: 048
     Dates: start: 20150807
  2. ORENITRAM [Suspect]
     Active Substance: TREPROSTINIL
     Dosage: UNK
     Route: 048
  3. ORENITRAM [Suspect]
     Active Substance: TREPROSTINIL
     Dosage: UNK
     Route: 048
  4. ORENITRAM [Suspect]
     Active Substance: TREPROSTINIL
     Dosage: 1.75 MG, TID
     Route: 048
  5. COUMADIN [Concomitant]
     Active Substance: WARFARIN SODIUM
     Indication: PRODUCT USED FOR UNKNOWN INDICATION
  6. ORENITRAM [Suspect]
     Active Substance: TREPROSTINIL
     Dosage: UNK
     Route: 048
  7. ORENITRAM [Suspect]
     Active Substance: TREPROSTINIL
     Dosage: 2.375 UNK, UNK
  8. ORENITRAM [Suspect]
     Active Substance: TREPROSTINIL
     Dosage: 1.875 MG, BID
     Route: 048
  9. ORENITRAM [Suspect]
     Active Substance: TREPROSTINIL
     Dosage: UNK
     Route: 048
  10. REVATIO [Concomitant]
     Active Substance: SILDENAFIL CITRATE
     Indication: PRODUCT USED FOR UNKNOWN INDICATION
  11. ORENITRAM [Suspect]
     Active Substance: TREPROSTINIL
     Dosage: 0.5 MG, BID
     Route: 048
     Dates: start: 20150807
  12. ORENITRAM [Suspect]
     Active Substance: TREPROSTINIL
     Dosage: 0.75 MG, BID
     Route: 048
     Dates: start: 20150807
  13. ORENITRAM [Suspect]
     Active Substance: TREPROSTINIL
     Dosage: 2.5 MG, Q12H
     Route: 048
  14. ORENITRAM [Suspect]
     Active Substance: TREPROSTINIL
     Indication: PULMONARY ARTERIAL HYPERTENSION
     Dosage: 0.125 MG, 1 TABLET, BID
     Route: 048
     Dates: start: 20150807
  15. ORENITRAM [Suspect]
     Active Substance: TREPROSTINIL
     Dosage: UNK
     Route: 048
  16. OPSUMIT [Concomitant]
     Active Substance: MACITENTAN
     Indication: PRODUCT USED FOR UNKNOWN INDICATION

REACTIONS (13)
  - Headache [Recovered/Resolved]
  - Diarrhoea [Unknown]
  - Feeling cold [Unknown]
  - Fatigue [Unknown]
  - Oxygen consumption increased [Unknown]
  - Arthralgia [Unknown]
  - Nausea [Not Recovered/Not Resolved]
  - Abdominal distension [Unknown]
  - Pain [Unknown]
  - Pain in jaw [Unknown]
  - Pain in extremity [Not Recovered/Not Resolved]
  - Rash pruritic [Unknown]
  - Heart rate decreased [Unknown]

NARRATIVE: CASE EVENT DATE: 201508
